FAERS Safety Report 13441016 (Version 2)
Quarter: 2017Q3

REPORT INFORMATION
  Report Type: Spontaneous
  Country: JP (occurrence: JP)
  Receive Date: 20170413
  Receipt Date: 20170712
  Transmission Date: 20171127
  Serious: Yes (Death, Other)
  Sender: FDA-Public Use
  Company Number: JP-BRISTOL-MYERS SQUIBB COMPANY-BMS-2017-030531

PATIENT
  Sex: Female
  Weight: 40 kg

DRUGS (3)
  1. ELIQUIS [Suspect]
     Active Substance: APIXABAN
     Indication: CEREBROVASCULAR ACCIDENT PROPHYLAXIS
     Dosage: 2.5 MG, BID
     Route: 048
     Dates: start: 20150615
  2. MYSLEE [Concomitant]
     Active Substance: ZOLPIDEM TARTRATE
     Indication: INSOMNIA
     Dosage: 5 MG, QD
     Route: 048
     Dates: start: 20160511
  3. DEPAS [Concomitant]
     Active Substance: ETIZOLAM
     Indication: ANXIETY DISORDER
     Dosage: 0.5 MG, BID
     Route: 048
     Dates: start: 20010215

REACTIONS (1)
  - Myocardial ischaemia [Fatal]
